FAERS Safety Report 4781854-6 (Version None)
Quarter: 2005Q3

REPORT INFORMATION
  Report Type: 
  Country: None (occurrence: None)
  Receive Date: 20050927
  Receipt Date: 20050915
  Transmission Date: 20060218
  Serious: Yes (Hospitalization)
  Sender: FDA-Public Use
  Company Number: 2005129983

PATIENT
  Sex: Male
  Weight: 127.0072 kg

DRUGS (1)
  1. GEODON [Suspect]
     Indication: ABNORMAL BEHAVIOUR
     Dates: end: 20010101

REACTIONS (7)
  - DRUG ADMINISTRATION ERROR [None]
  - FACIAL BONES FRACTURE [None]
  - FACIAL PALSY [None]
  - FEMUR FRACTURE [None]
  - MUSCLE CONTRACTURE [None]
  - PERONEAL NERVE PALSY [None]
  - VICTIM OF CRIME [None]
